FAERS Safety Report 11376683 (Version 1)
Quarter: 2015Q3

REPORT INFORMATION
  Report Type: Spontaneous
  Country: DE (occurrence: DE)
  Receive Date: 20150813
  Receipt Date: 20150813
  Transmission Date: 20151125
  Serious: Yes (Hospitalization)
  Sender: FDA-Public Use
  Company Number: DE-ASTRAZENECA-2015SE76618

PATIENT
  Age: 52 Year
  Sex: Male

DRUGS (19)
  1. FLUANXOL [Suspect]
     Active Substance: FLUPENTIXOL
     Route: 048
     Dates: start: 20110504
  2. CIATYL [Suspect]
     Active Substance: CLOPENTHIXOL HYDROCHLORIDE
     Route: 048
     Dates: start: 20110523, end: 20110525
  3. PULMICORT TURBUHALER [Concomitant]
     Active Substance: BUDESONIDE
     Dosage: 2 PUFFS
     Route: 055
     Dates: start: 20110310
  4. MOVICOL [Concomitant]
     Active Substance: POLYETHYLENE GLYCOL 3350\POTASSIUM CHLORIDE\SODIUM BICARBONATE\SODIUM CHLORIDE
     Dosage: 2 SACCHETS
     Dates: start: 20110310
  5. TRUXAL [Suspect]
     Active Substance: CHLORPROTHIXENE
     Route: 048
     Dates: start: 20110327
  6. CIATYL [Suspect]
     Active Substance: CLOPENTHIXOL HYDROCHLORIDE
     Route: 048
     Dates: start: 20110510
  7. SEROQUEL [Suspect]
     Active Substance: QUETIAPINE FUMARATE
     Route: 048
     Dates: start: 20110310
  8. CIATYL [Suspect]
     Active Substance: CLOPENTHIXOL HYDROCHLORIDE
     Route: 048
     Dates: start: 20110519
  9. TRUXAL [Suspect]
     Active Substance: CHLORPROTHIXENE
     Route: 048
     Dates: start: 20110523, end: 20110529
  10. FLUANXOL [Suspect]
     Active Substance: FLUPENTIXOL
     Route: 048
     Dates: start: 20110506
  11. FLUANXOL [Suspect]
     Active Substance: FLUPENTIXOL
     Route: 048
     Dates: start: 20110512
  12. CIATYL [Suspect]
     Active Substance: CLOPENTHIXOL HYDROCHLORIDE
     Route: 048
     Dates: start: 20110512
  13. CIATYL [Suspect]
     Active Substance: CLOPENTHIXOL HYDROCHLORIDE
     Route: 048
     Dates: start: 20110420
  14. PANTOZOL [Concomitant]
     Active Substance: PANTOPRAZOLE SODIUM
     Route: 048
  15. HYPNOREX [Suspect]
     Active Substance: LITHIUM CARBONATE
     Route: 048
     Dates: start: 20110326
  16. CIATYL [Suspect]
     Active Substance: CLOPENTHIXOL HYDROCHLORIDE
     Route: 048
     Dates: start: 20110505
  17. TRUXAL [Suspect]
     Active Substance: CHLORPROTHIXENE
     Route: 048
     Dates: start: 20110421
  18. GASTROZEPIN [Suspect]
     Active Substance: PIRENZEPINE HYDROCHLORIDE
     Route: 048
     Dates: start: 20110415, end: 20110611
  19. CIATYL [Suspect]
     Active Substance: CLOPENTHIXOL HYDROCHLORIDE
     Route: 048
     Dates: start: 20110405

REACTIONS (3)
  - Urinary hesitation [Recovered/Resolved]
  - Ataxia [Recovered/Resolved]
  - Gait disturbance [Recovered/Resolved]

NARRATIVE: CASE EVENT DATE: 20110516
